FAERS Safety Report 19753700 (Version 4)
Quarter: 2022Q2

REPORT INFORMATION
  Report Type: Spontaneous
  Country: JP (occurrence: JP)
  Receive Date: 20210826
  Receipt Date: 20220422
  Transmission Date: 20220721
  Serious: Yes (Other)
  Sender: FDA-Public Use
  Company Number: JP-BRISTOL-MYERS SQUIBB COMPANY-BMS-2021-084603

PATIENT
  Age: 8 Decade
  Sex: Male

DRUGS (4)
  1. YERVOY [Suspect]
     Active Substance: IPILIMUMAB
     Indication: Metastatic malignant melanoma
     Route: 041
     Dates: start: 20180719, end: 20180925
  2. OPDIVO [Suspect]
     Active Substance: NIVOLUMAB
     Indication: Metastatic malignant melanoma
     Dosage: 240 MILLIGRAM, Q2WK
     Route: 041
     Dates: start: 20181015
  3. OPDIVO [Suspect]
     Active Substance: NIVOLUMAB
     Route: 041
     Dates: start: 20180719, end: 20180925
  4. OPDIVO [Suspect]
     Active Substance: NIVOLUMAB
     Dosage: 480MG/BODY:Q4W
     Route: 041
     Dates: start: 20191109

REACTIONS (3)
  - Adrenal insufficiency [Unknown]
  - Leukoderma [Unknown]
  - Metastases to lymph nodes [Unknown]
